FAERS Safety Report 4443444-4 (Version None)
Quarter: 2004Q3

REPORT INFORMATION
  Report Type: 
  Country: None (occurrence: None)
  Receive Date: 20040903
  Receipt Date: 20040903
  Transmission Date: 20050211
  Serious: Yes (Death)
  Sender: FDA-Public Use
  Company Number: None

PATIENT
  Age: 77 Year
  Sex: Male

DRUGS (2)
  1. AVELOX [Suspect]
     Indication: PNEUMONIA
     Dosage: 400 MG PO Q DAY
     Route: 048
     Dates: start: 20040829, end: 20040901
  2. VANCOMYCIN [Concomitant]

REACTIONS (1)
  - ARRHYTHMIA [None]
